FAERS Safety Report 22337648 (Version 1)
Quarter: 2023Q2

REPORT INFORMATION
  Report Type: Spontaneous
  Country: CA (occurrence: CA)
  Receive Date: 20230518
  Receipt Date: 20230518
  Transmission Date: 20230722
  Serious: Yes (Hospitalization, Other)
  Sender: FDA-Public Use
  Company Number: CA-BAYER-2023A064506

PATIENT

DRUGS (18)
  1. NAPROXEN SODIUM [Suspect]
     Active Substance: NAPROXEN SODIUM
     Indication: Juvenile idiopathic arthritis
     Dosage: UNK
  2. ENBREL [Suspect]
     Active Substance: ETANERCEPT
     Indication: Juvenile idiopathic arthritis
     Dosage: 25 MG
     Route: 058
  3. ENBREL [Suspect]
     Active Substance: ETANERCEPT
     Indication: Juvenile idiopathic arthritis
     Dosage: 12,5 MILLIGRAM,4 EVERY 1 WEEKS
     Route: 058
  4. HUMIRA [Suspect]
     Active Substance: ADALIMUMAB
     Indication: Juvenile idiopathic arthritis
     Dosage: UNK
     Route: 058
  5. HYDROXYCHLOROQUINE SULFATE [Suspect]
     Active Substance: HYDROXYCHLOROQUINE SULFATE
     Indication: Juvenile idiopathic arthritis
     Dosage: 5 MG/KG, QD,1 EVERY 1 DAYS
     Route: 048
  6. ANAKINRA [Suspect]
     Active Substance: ANAKINRA
     Indication: Juvenile idiopathic arthritis
     Dosage: 50 MG, QD
     Route: 058
  7. PREDNISONE [Suspect]
     Active Substance: PREDNISONE
     Indication: Juvenile idiopathic arthritis
     Dosage: 5 MG, BID
     Route: 048
  8. PREDNISONE [Suspect]
     Active Substance: PREDNISONE
     Indication: Juvenile idiopathic arthritis
     Dosage: 3 MG,2 EVERY 1 DAYS
     Route: 048
  9. ORENCIA [Suspect]
     Active Substance: ABATACEPT
     Indication: Juvenile idiopathic arthritis
     Dosage: 250 MG, Q1MON,1 EVERY 1 MONTHS
     Route: 042
  10. INFLIXIMAB [Suspect]
     Active Substance: INFLIXIMAB
     Indication: Juvenile idiopathic arthritis
     Dosage: 3 MG/KG, OW,1 EVERY 1 WEEKS
     Route: 042
  11. INFLIXIMAB [Suspect]
     Active Substance: INFLIXIMAB
     Indication: Juvenile idiopathic arthritis
     Dosage: 5 MG
  12. TOCILIZUMAB [Suspect]
     Active Substance: TOCILIZUMAB
     Indication: Juvenile idiopathic arthritis
     Dosage: 280 MG, QD
     Route: 042
  13. SULFASALAZINE [Suspect]
     Active Substance: SULFASALAZINE
     Indication: Juvenile idiopathic arthritis
     Dosage: 250 MG,1 EVERY 1 DAYS
     Route: 048
  14. METHOTREXATE [Suspect]
     Active Substance: METHOTREXATE
     Indication: Juvenile idiopathic arthritis
     Dosage: 15 MG/M2,1 EVERY 1 WEEKS
     Route: 058
  15. TRIAMCINOLONE ACETONIDE [Suspect]
     Active Substance: TRIAMCINOLONE ACETONIDE
     Indication: Juvenile idiopathic arthritis
     Route: 014
  16. ADALIMUMAB [Suspect]
     Active Substance: ADALIMUMAB
     Indication: Juvenile idiopathic arthritis
     Route: 058
  17. HUMAN IMMUNOGLOBULIN G [Suspect]
     Active Substance: HUMAN IMMUNOGLOBULIN G
     Indication: Juvenile idiopathic arthritis
     Dosage: 70 G
     Route: 042
  18. ACTEMRA [Suspect]
     Active Substance: TOCILIZUMAB
     Indication: Juvenile idiopathic arthritis
     Dosage: 280 MG
     Route: 042

REACTIONS (22)
  - Human antichimeric antibody positive [None]
  - Juvenile idiopathic arthritis [None]
  - Loss of personal independence in daily activities [None]
  - Obesity [None]
  - Polyarthritis [None]
  - Psoriasis [None]
  - Red blood cell sedimentation rate increased [None]
  - Septic shock [None]
  - Synovitis [None]
  - Vomiting [None]
  - Diarrhoea [None]
  - Underdose [None]
  - Off label use [None]
  - Adrenal insufficiency [None]
  - Antibody test positive [None]
  - Arthritis [None]
  - Body height below normal [None]
  - Bone density decreased [None]
  - C-reactive protein increased [None]
  - Condition aggravated [None]
  - Drug ineffective [Unknown]
  - Drug intolerance [Unknown]
